FAERS Safety Report 17516030 (Version 1)
Quarter: 2020Q1

REPORT INFORMATION
  Report Type: Spontaneous
  Country: DE (occurrence: DE)
  Receive Date: 20200309
  Receipt Date: 20200309
  Transmission Date: 20200409
  Serious: Yes (Other)
  Sender: FDA-Public Use
  Company Number: DE-PFIZER INC-2020097400

PATIENT

DRUGS (1)
  1. CYTOTEC [Suspect]
     Active Substance: MISOPROSTOL
     Indication: LABOUR INDUCTION
     Dosage: EXACT DOSAGE UNKNOWN. INITIALLY ^HALF DOSE^, THE FOLLOWING DAY ^DOUBLE DOSE^
     Route: 064
     Dates: start: 20180701, end: 20180702

REACTIONS (3)
  - Foetal exposure during delivery [Unknown]
  - Foetal heart rate abnormal [Recovered/Resolved]
  - Foetal anaemia [Recovered/Resolved]

NARRATIVE: CASE EVENT DATE: 20180702
